FAERS Safety Report 4382856-4 (Version None)
Quarter: 2004Q2

REPORT INFORMATION
  Report Type: 
  Country: None (occurrence: None)
  Receive Date: 20040617
  Receipt Date: 20040602
  Transmission Date: 20050107
  Serious: Yes (Hospitalization)
  Sender: FDA-Public Use
  Company Number: US-JNJFOC-20040205306

PATIENT
  Age: 37 Year
  Sex: Female

DRUGS (4)
  1. REGRANEX [Suspect]
     Indication: POSTOPERATIVE WOUND COMPLICATION
     Dosage: TOPICAL
     Route: 061
     Dates: start: 20031217
  2. CHEMOTHERAPY (ANTINEOPLASTIC AGENTS) [Concomitant]
  3. NARCOTIC ANALGESICS (ANALGESICS) [Concomitant]
  4. MYCELEX [Concomitant]

REACTIONS (3)
  - CATHETER RELATED COMPLICATION [None]
  - CATHETER SITE PAIN [None]
  - DEVICE FAILURE [None]
